FAERS Safety Report 16717524 (Version 1)
Quarter: 2019Q3

REPORT INFORMATION
  Report Type: Spontaneous
  Country: US (occurrence: US)
  Receive Date: 20190819
  Receipt Date: 20190819
  Transmission Date: 20191005
  Serious: No
  Sender: FDA-Public Use
  Company Number: US-SA-2019SA206012

PATIENT
  Sex: Female

DRUGS (2)
  1. RABIES VACCINE [Suspect]
     Active Substance: RABIES VACCINE
     Indication: IMMUNISATION
     Route: 065
     Dates: start: 20190722
  2. HUMAN ANTIRABIES IMMUNOGLOBULIN [Suspect]
     Active Substance: RABIES IMMUNE GLOBULIN (HUMAN)
     Indication: IMMUNISATION
     Dosage: UNK
     Route: 065
     Dates: start: 20190722, end: 20190722

REACTIONS (2)
  - Extra dose administered [Unknown]
  - Product administered at inappropriate site [Unknown]
